FAERS Safety Report 8006696-X (Version None)
Quarter: 2011Q4

REPORT INFORMATION
  Report Type: 
  Country: None (occurrence: None)
  Receive Date: 20111205
  Receipt Date: 20111122
  Transmission Date: 20120403
  Serious: Yes (Life-Threatening, Hospitalization)
  Sender: FDA-Public Use
  Company Number: M2011-040

PATIENT
  Age: 17 Year
  Sex: Male

DRUGS (1)
  1. ALLERGENIC EXTRACTS [Suspect]
     Indication: ANTIALLERGIC THERAPY
     Dosage: 0.50ML MONTHLY SC
     Route: 058
     Dates: start: 20110301, end: 20111101

REACTIONS (2)
  - ANAPHYLACTIC REACTION [None]
  - RESPIRATORY ARREST [None]
